FAERS Safety Report 11791832 (Version 2)
Quarter: 2016Q1

REPORT INFORMATION
  Report Type: Report from Study
  Country: US (occurrence: US)
  Receive Date: 20151201
  Receipt Date: 20160202
  Transmission Date: 20160525
  Serious: Yes (Hospitalization)
  Sender: FDA-Public Use
  Company Number: PHHO2015US019216

PATIENT
  Age: 67 Year
  Sex: Female
  Weight: 118.5 kg

DRUGS (4)
  1. ERIBULIN MESYLATE [Suspect]
     Active Substance: ERIBULIN MESYLATE
     Dosage: 1.4 MG/M2, (D1 AND 8 OF 21 DAYS)
     Route: 042
     Dates: start: 20151106
  2. AFINITOR [Suspect]
     Active Substance: EVEROLIMUS
     Indication: BREAST CANCER
     Dosage: 5 MG, QD (21 DAYS)
     Route: 048
     Dates: start: 20151016, end: 20151029
  3. AFINITOR [Suspect]
     Active Substance: EVEROLIMUS
     Dosage: 2.5 MG, QD (21 DAYS)
     Route: 048
     Dates: start: 20151106
  4. ERIBULIN MESYLATE [Suspect]
     Active Substance: ERIBULIN MESYLATE
     Indication: BREAST CANCER
     Dosage: 1.4 MG/M2, (D1 AND 8 OF 21 DAYS)
     Route: 042
     Dates: start: 20151016, end: 20151023

REACTIONS (1)
  - Febrile neutropenia [Recovered/Resolved]

NARRATIVE: CASE EVENT DATE: 20151029
